FAERS Safety Report 6269624-3 (Version None)
Quarter: 2009Q3

REPORT INFORMATION
  Report Type: 
  Country: None (occurrence: None)
  Receive Date: 20090714
  Receipt Date: 20090702
  Transmission Date: 20100115
  Serious: Yes (Hospitalization)
  Sender: FDA-Public Use
  Company Number: 2008AL007882

PATIENT
  Age: 62 Year
  Sex: Female

DRUGS (23)
  1. DIGOXIN [Suspect]
     Indication: CARDIAC DISORDER
     Dosage: 0.125MG, PO
     Route: 048
  2. SPIRIVA [Concomitant]
  3. MAXAIR [Concomitant]
  4. ACIPHEX [Concomitant]
  5. RANITIDINE [Concomitant]
  6. ALPRAZOLAM [Concomitant]
  7. METOPROLOL SUCCINATE [Concomitant]
  8. ENALAPRIL MALEATE [Concomitant]
  9. TOPROL-XL [Concomitant]
  10. VASOTEC [Concomitant]
  11. COUMADIN [Concomitant]
  12. LIPITOR [Concomitant]
  13. COLESTIPOL HYDROCHLORIDE [Concomitant]
  14. RHYTHMOL [Concomitant]
  15. LASIX [Concomitant]
  16. XANAX [Concomitant]
  17. COLESTID [Concomitant]
  18. PREMARIN [Concomitant]
  19. ZANTAC [Concomitant]
  20. NABUMETONE [Concomitant]
  21. FLONASE [Concomitant]
  22. KEFLEX [Concomitant]
  23. ARIMIDEX [Concomitant]

REACTIONS (19)
  - ANXIETY [None]
  - ARRHYTHMIA [None]
  - ASTHENIA [None]
  - BREAST MASS [None]
  - CARDIAC ARREST [None]
  - CARDIAC DISORDER [None]
  - DEHYDRATION [None]
  - FALL [None]
  - FATIGUE [None]
  - HEART RATE IRREGULAR [None]
  - HYPOTENSION [None]
  - INJURY [None]
  - NAUSEA [None]
  - NERVOUS SYSTEM DISORDER [None]
  - SYNCOPE [None]
  - THERAPEUTIC AGENT TOXICITY [None]
  - VERTIGO [None]
  - VOMITING [None]
  - WOUND SECRETION [None]
